FAERS Safety Report 9548404 (Version 1)
Quarter: 2013Q3

REPORT INFORMATION
  Report Type: Spontaneous
  Country: FR (occurrence: FR)
  Receive Date: 20130924
  Receipt Date: 20130924
  Transmission Date: 20140515
  Serious: Yes (Hospitalization)
  Sender: FDA-Public Use
  Company Number: PHHY2013FR104933

PATIENT
  Age: 69 Year
  Sex: Male

DRUGS (5)
  1. ZOMETA [Suspect]
     Dosage: 4 MG, QMO OR FROM DAY 1
     Route: 042
     Dates: start: 20120917, end: 20130723
  2. DEXAMETHASONE [Suspect]
     Dosage: 20 MG, FROM DAY ONE TO DAY FOUR OF 28 DAY CYCLE
     Route: 042
     Dates: start: 20120917, end: 20130723
  3. REVLIMID [Suspect]
     Dosage: 25 MG, FROM DAY ONE TO DAY 21
     Route: 048
     Dates: start: 20120917, end: 20130723
  4. DIAMICRON [Concomitant]
     Dosage: 2 DF, QD
  5. JANUMET [Concomitant]
     Dosage: 1 DF, BID

REACTIONS (3)
  - Diaphragmatic paralysis [Unknown]
  - Dyspnoea [Unknown]
  - Chest pain [Unknown]
